FAERS Safety Report 14367724 (Version 1)
Quarter: 2018Q1

REPORT INFORMATION
  Report Type: Spontaneous
  Country: US (occurrence: US)
  Receive Date: 20180109
  Receipt Date: 20180109
  Transmission Date: 20180509
  Serious: No
  Sender: FDA-Public Use
  Company Number: US-ELI_LILLY_AND_COMPANY-US201712012366

PATIENT
  Sex: Male

DRUGS (4)
  1. LARTRUVO [Suspect]
     Active Substance: OLARATUMAB
     Indication: ROUND CELL LIPOSARCOMA
     Dosage: 1100 MG, SINGLE
     Route: 042
     Dates: start: 20171219, end: 20171220
  2. DEXRAZOXANE. [Concomitant]
     Active Substance: DEXRAZOXANE
     Indication: PROPHYLAXIS
  3. DEXAMETHASONE. [Concomitant]
     Active Substance: DEXAMETHASONE
     Indication: PREMEDICATION
     Dosage: UNK
     Dates: start: 20171219, end: 20171219
  4. DOXORUBICIN [Concomitant]
     Active Substance: DOXORUBICIN
     Indication: ROUND CELL LIPOSARCOMA
     Dosage: UNK
     Dates: start: 20171219

REACTIONS (1)
  - Hypersensitivity [Recovering/Resolving]
